FAERS Safety Report 21323193 (Version 2)
Quarter: 2022Q3

REPORT INFORMATION
  Report Type: Spontaneous
  Country: US (occurrence: US)
  Receive Date: 20220912
  Receipt Date: 20220915
  Transmission Date: 20221027
  Serious: Yes (Hospitalization, Other)
  Sender: FDA-Public Use
  Company Number: US-MLMSERVICE-20220824-3751803-1

PATIENT
  Age: 43 Year
  Sex: Female

DRUGS (1)
  1. ATORVASTATIN CALCIUM [Suspect]
     Active Substance: ATORVASTATIN CALCIUM
     Indication: Hyperlipidaemia
     Dosage: UNK

REACTIONS (6)
  - Drug reaction with eosinophilia and systemic symptoms [Recovered/Resolved]
  - Hepatocellular injury [Recovered/Resolved]
  - Human herpesvirus 6 infection reactivation [Recovered/Resolved]
  - Dermatitis [Recovered/Resolved]
  - Superficial inflammatory dermatosis [Recovered/Resolved]
  - Synovitis [Recovered/Resolved]
